FAERS Safety Report 7216353-5 (Version None)
Quarter: 2011Q1

REPORT INFORMATION
  Report Type: 
  Country: None (occurrence: None)
  Receive Date: 20110107
  Receipt Date: 20110105
  Transmission Date: 20110831
  Serious: Yes (Other)
  Sender: FDA-Public Use
  Company Number: US-ABBOTT-11P-163-0695706-00

PATIENT
  Sex: Male
  Weight: 3.052 kg

DRUGS (2)
  1. HUMIRA [Suspect]
     Route: 063
     Dates: start: 20100723
  2. HUMIRA [Suspect]
     Indication: DRUG EXPOSURE DURING PREGNANCY
     Route: 064

REACTIONS (3)
  - DRUG EXPOSURE DURING PREGNANCY [None]
  - JAUNDICE [None]
  - DRUG EXPOSURE VIA BREAST MILK [None]
